FAERS Safety Report 15374893 (Version 2)
Quarter: 2019Q4

REPORT INFORMATION
  Report Type: Spontaneous
  Country: US (occurrence: US)
  Receive Date: 20180912
  Receipt Date: 20191121
  Transmission Date: 20200122
  Serious: Yes (Death, Other)
  Sender: FDA-Public Use
  Company Number: US-UPSHER-SMITH LABORATORIES, LLC-2018USL00074

PATIENT
  Sex: Female

DRUGS (7)
  1. ANDROXY [Suspect]
     Active Substance: FLUOXYMESTERONE
     Indication: BREAST CANCER METASTATIC
     Dosage: UNK
     Route: 048
  2. ANDROXY [Suspect]
     Active Substance: FLUOXYMESTERONE
     Dosage: UNK
     Route: 048
     Dates: end: 2018
  3. EXEMESTANE. [Concomitant]
     Active Substance: EXEMESTANE
     Dosage: UNK
     Dates: end: 2018
  4. LANTUS [Concomitant]
     Active Substance: INSULIN GLARGINE
  5. ANDROXY [Suspect]
     Active Substance: FLUOXYMESTERONE
     Dosage: UNK
     Route: 048
     Dates: start: 201808
  6. ZOLEDRONIC ACID [Suspect]
     Active Substance: ZOLEDRONIC ACID
     Dosage: UNK
     Dates: start: 201709
  7. EXEMESTANE. [Concomitant]
     Active Substance: EXEMESTANE
     Dosage: UNK
     Dates: start: 201808

REACTIONS (5)
  - Drug ineffective [Not Recovered/Not Resolved]
  - Renal failure [Not Recovered/Not Resolved]
  - Death [Fatal]
  - Creatinine renal clearance decreased [Not Recovered/Not Resolved]
  - Oedema peripheral [Recovered/Resolved]

NARRATIVE: CASE EVENT DATE: 201709
